FAERS Safety Report 20623514 (Version 3)
Quarter: 2022Q2

REPORT INFORMATION
  Report Type: Spontaneous
  Country: TW (occurrence: TW)
  Receive Date: 20220322
  Receipt Date: 20220411
  Transmission Date: 20220721
  Serious: Yes (Life-Threatening, Other)
  Sender: FDA-Public Use
  Company Number: TW-MLMSERVICE-20220308-3418077-1

PATIENT
  Age: 38 Year
  Sex: Female
  Weight: 47.8 kg

DRUGS (6)
  1. DAUNORUBICIN HYDROCHLORIDE [Suspect]
     Active Substance: DAUNORUBICIN HYDROCHLORIDE
     Indication: Precursor T-lymphoblastic lymphoma/leukaemia stage II
     Dosage: UNK
  2. METHOTREXATE SODIUM [Suspect]
     Active Substance: METHOTREXATE SODIUM
     Indication: Precursor T-lymphoblastic lymphoma/leukaemia stage II
     Dosage: 1450 MG
     Route: 042
  3. VINCRISTINE SULFATE [Suspect]
     Active Substance: VINCRISTINE SULFATE
     Indication: Precursor T-lymphoblastic lymphoma/leukaemia stage II
     Dosage: UNK
  4. PREDNISONE [Suspect]
     Active Substance: PREDNISONE
     Indication: Precursor T-lymphoblastic lymphoma/leukaemia stage II
     Dosage: UNK (INFUSION)
  5. ASPARAGINASE [Suspect]
     Active Substance: ASPARAGINASE
     Indication: Precursor T-lymphoblastic lymphoma/leukaemia stage II
     Dosage: 8000 IU
     Route: 058
  6. CYCLOPHOSPHAMIDE [Suspect]
     Active Substance: CYCLOPHOSPHAMIDE
     Indication: Precursor T-lymphoblastic lymphoma/leukaemia stage II
     Dosage: UNK (INFUSION)

REACTIONS (5)
  - Thrombocytopenia [Recovered/Resolved]
  - Anaemia [Unknown]
  - Febrile neutropenia [Recovered/Resolved]
  - Nausea [Recovering/Resolving]
  - Vomiting [Recovering/Resolving]
